FAERS Safety Report 9336654 (Version 1)
Quarter: 2013Q2

REPORT INFORMATION
  Report Type: Report from Study
  Country: NL (occurrence: NL)
  Receive Date: 20130607
  Receipt Date: 20130607
  Transmission Date: 20140414
  Serious: Yes (Disabling)
  Sender: FDA-Public Use
  Company Number: PHHY2013NL056354

PATIENT
  Sex: Male

DRUGS (11)
  1. ZOMETA [Suspect]
     Indication: PROSTATE CANCER METASTATIC
     Dosage: 4 MG, PER 100 ML ONCE EVERY 4 WEEKS
     Route: 042
  2. ZOMETA [Suspect]
     Dosage: 4 MG, PER 100 ML ONCE EVERY 4 WEEKS
     Route: 042
     Dates: start: 20121210
  3. ZOMETA [Suspect]
     Dosage: 4 MG, PER 100 ML ONCE EVERY 4 WEEKS
     Route: 042
     Dates: start: 20130502
  4. ZOMETA [Suspect]
     Dosage: 4 MG, PER 100 ML ONCE EVERY 4 WEEKS
     Route: 042
     Dates: start: 20130603, end: 20130603
  5. FRAGMIN [Concomitant]
     Dosage: 25000 IU, DAILY
  6. PREDNISOLONE [Concomitant]
     Dosage: 5 MG, BID
  7. ESOMEPRAZOLE [Concomitant]
     Dosage: 40 MG, DAILY
  8. LUCRIN [Concomitant]
     Dosage: 11.25 MG, EVERY 3 MONTHS
  9. METOPROLOL TARTRATE [Concomitant]
     Dosage: 100 MG, DAILY
  10. FUROSEMIDE [Concomitant]
     Dosage: 40 MG, DAILY
  11. CARBASALATE CALCIUM [Concomitant]
     Dosage: 100 MG, DAILY

REACTIONS (2)
  - Tooth fracture [Not Recovered/Not Resolved]
  - Pain in jaw [Not Recovered/Not Resolved]
